FAERS Safety Report 6787857-4 (Version None)
Quarter: 2010Q2

REPORT INFORMATION
  Report Type: 
  Country: None (occurrence: None)
  Receive Date: 20100623
  Receipt Date: 20071124
  Transmission Date: 20101027
  Serious: Yes (Other)
  Sender: FDA-Public Use
  Company Number: US-PFIZER INC-2007080829

PATIENT
  Sex: Female
  Weight: 70 kg

DRUGS (4)
  1. DEPO-PROVERA SUSPENSION/INJ [Suspect]
     Indication: CONTRACEPTION
     Dosage: 1ST INJECTION, 1ST CYCLE
     Route: 030
     Dates: start: 20040601, end: 20040601
  2. DEPO-PROVERA SUSPENSION/INJ [Suspect]
     Dosage: 1ST INJECTION, 2ND CYCLE
     Route: 030
     Dates: start: 20061128, end: 20061128
  3. DEPO-PROVERA SUSPENSION/INJ [Suspect]
     Route: 030
     Dates: start: 20070523, end: 20070523
  4. DEPO-PROVERA SUSPENSION/INJ [Suspect]
     Dosage: MOST RECENT INJECTION, 2ND CYCLE
     Route: 030
     Dates: start: 20070815, end: 20070815

REACTIONS (2)
  - DRUG INEFFECTIVE [None]
  - UNINTENDED PREGNANCY [None]
